FAERS Safety Report 4822381-7 (Version None)
Quarter: 2005Q4

REPORT INFORMATION
  Report Type: 
  Country: None (occurrence: None)
  Receive Date: 20051108
  Receipt Date: 20041214
  Transmission Date: 20060501
  Serious: Yes (Other)
  Sender: FDA-Public Use
  Company Number: NL-BOEHRINGER INGELHEIM PHARMACEUTICALS, INC.-2004-NL-00191NL

PATIENT
  Sex: Female

DRUGS (3)
  1. MICARDIS [Suspect]
     Indication: ESSENTIAL HYPERTENSION
     Route: 048
     Dates: start: 20040914, end: 20041003
  2. OXAZEPAM DUMAX [Concomitant]
     Route: 048
  3. LISINOPRIL DUMEX [Concomitant]
     Route: 048
     Dates: start: 20040908, end: 20040923

REACTIONS (1)
  - VISUAL ACUITY REDUCED [None]
